FAERS Safety Report 11259700 (Version 1)
Quarter: 2015Q3

REPORT INFORMATION
  Report Type: Spontaneous
  Country: US (occurrence: None)
  Receive Date: 20150709
  Receipt Date: 20150709
  Transmission Date: 20151125
  Serious: Yes (Hospitalization, Disabling)
  Sender: FDA-Public Use
  Company Number: None

PATIENT
  Age: 71 Year
  Sex: Female
  Weight: 54.43 kg

DRUGS (15)
  1. PROGRAF [Concomitant]
     Active Substance: TACROLIMUS\TACROLIMUS ANHYDROUS
  2. METROPOLOL [Concomitant]
     Active Substance: METOPROLOL
  3. NEXIUM [Concomitant]
     Active Substance: ESOMEPRAZOLE MAGNESIUM
  4. ERGOCALCIFERAL [Concomitant]
  5. MYFORDIC [Concomitant]
  6. INSULIN [Concomitant]
     Active Substance: INSULIN NOS
  7. MULTIITAMINS [Concomitant]
  8. CALCIUM [Concomitant]
     Active Substance: CALCIUM
  9. HEPATITIS B IG [Concomitant]
  10. AMLODIPINE [Concomitant]
     Active Substance: AMLODIPINE BESYLATE
  11. COLACE [Concomitant]
     Active Substance: DOCUSATE SODIUM
  12. CIDOFOVIR 60-80 MG [Suspect]
     Active Substance: CIDOFOVIR
     Indication: BK VIRUS INFECTION
     Dates: start: 20150301, end: 20150608
  13. VIREAD [Concomitant]
     Active Substance: TENOFOVIR DISOPROXIL FUMARATE
  14. CIDOFOVIR 60-80 MG [Suspect]
     Active Substance: CIDOFOVIR
     Indication: RENAL TRANSPLANT
     Dates: start: 20150301, end: 20150608
  15. CIDOFOVIR 60-80 MG [Suspect]
     Active Substance: CIDOFOVIR
     Indication: LIVER TRANSPLANT
     Dates: start: 20150301, end: 20150608

REACTIONS (4)
  - Blindness [None]
  - Vision blurred [None]
  - Physical disability [None]
  - Seasonal allergy [None]

NARRATIVE: CASE EVENT DATE: 20150615
